FAERS Safety Report 19508706 (Version 2)
Quarter: 2021Q3

REPORT INFORMATION
  Report Type: Spontaneous
  Country: US (occurrence: US)
  Receive Date: 20210708
  Receipt Date: 20210826
  Transmission Date: 20211014
  Serious: Yes (Death, Life-Threatening, Hospitalization)
  Sender: FDA-Public Use
  Company Number: US-TEVA-2021-US-1928882

PATIENT
  Age: 78 Year
  Sex: Female

DRUGS (3)
  1. CIPROFLOXACIN. [Concomitant]
     Active Substance: CIPROFLOXACIN
     Indication: CYSTITIS
     Route: 065
  2. FUROSEMIDE. [Concomitant]
     Active Substance: FUROSEMIDE
     Indication: OEDEMA
     Route: 065
  3. TENOFOVIR [Suspect]
     Active Substance: TENOFOVIR
     Indication: CHRONIC HEPATITIS B
     Route: 065

REACTIONS (6)
  - Fanconi syndrome [Fatal]
  - Multiple organ dysfunction syndrome [Fatal]
  - Encephalopathy [Unknown]
  - Sinus arrest [Recovered/Resolved]
  - Respiratory failure [Unknown]
  - Acute respiratory distress syndrome [Unknown]
